FAERS Safety Report 6111354-2 (Version None)
Quarter: 2009Q1

REPORT INFORMATION
  Report Type: 
  Country: None (occurrence: None)
  Receive Date: 20090311
  Receipt Date: 20090303
  Transmission Date: 20090719
  Serious: Yes (Other)
  Sender: FDA-Public Use
  Company Number: A0772557A

PATIENT
  Sex: Male
  Weight: 61.1 kg

DRUGS (10)
  1. EPZICOM [Suspect]
     Indication: DRUG USE FOR UNKNOWN INDICATION
     Dates: start: 20090128
  2. ROMIPLOSTIM [Suspect]
     Indication: IDIOPATHIC THROMBOCYTOPENIC PURPURA
     Dates: start: 20081222
  3. REYATAZ [Suspect]
     Indication: DRUG USE FOR UNKNOWN INDICATION
     Dates: start: 20090128
  4. TRIAZOLAM [Concomitant]
  5. METHADONE HCL [Concomitant]
     Dosage: 40MG THREE TIMES PER DAY
     Route: 048
  6. RANITIDINE [Concomitant]
     Dosage: 150MG TWICE PER DAY
     Route: 048
  7. ALPRAZOLAM [Concomitant]
     Dosage: 2MG AS REQUIRED
  8. ORCIPRENALINE SULFATE [Concomitant]
     Route: 055
  9. ESTAZOLAM [Concomitant]
     Dosage: 2MG PER DAY
  10. TEMAZEPAM [Concomitant]
     Dosage: 30MG PER DAY

REACTIONS (2)
  - DRUG INTERACTION [None]
  - PLATELET COUNT DECREASED [None]
